FAERS Safety Report 18362711 (Version 2)
Quarter: 2021Q4

REPORT INFORMATION
  Report Type: Spontaneous
  Country: US (occurrence: US)
  Receive Date: 20201008
  Receipt Date: 20211201
  Transmission Date: 20220304
  Serious: No
  Sender: FDA-Public Use
  Company Number: US-NOVARTISTESTPH-NVSC2020US266267

PATIENT
  Sex: Female
  Weight: 84.354 kg

DRUGS (1)
  1. ILARIS [Suspect]
     Active Substance: CANAKINUMAB
     Indication: Pyrexia
     Dosage: 300 MG/KG, QMO
     Route: 058
     Dates: start: 20200127

REACTIONS (2)
  - Illness [Not Recovered/Not Resolved]
  - Ill-defined disorder [Not Recovered/Not Resolved]
